FAERS Safety Report 23917841 (Version 2)
Quarter: 2024Q2

REPORT INFORMATION
  Report Type: Spontaneous
  Country: US (occurrence: US)
  Receive Date: 20240530
  Receipt Date: 20240603
  Transmission Date: 20240716
  Serious: Yes (Other)
  Sender: FDA-Public Use
  Company Number: US-002147023-NVSC2024US110528

PATIENT
  Sex: Female

DRUGS (1)
  1. KESIMPTA [Suspect]
     Active Substance: OFATUMUMAB
     Indication: Product used for unknown indication
     Dosage: UNK
     Route: 065

REACTIONS (10)
  - Relapsing-remitting multiple sclerosis [Unknown]
  - Progressive multifocal leukoencephalopathy [Unknown]
  - Multiple sclerosis [Unknown]
  - Fatigue [Unknown]
  - Hypokinesia [Unknown]
  - Memory impairment [Unknown]
  - Reading disorder [Unknown]
  - Urinary hesitation [Unknown]
  - Motor dysfunction [Unknown]
  - Brain fog [Unknown]
